FAERS Safety Report 10227379 (Version 1)
Quarter: 2014Q2

REPORT INFORMATION
  Report Type: Spontaneous
  Country: US (occurrence: US)
  Receive Date: 20140610
  Receipt Date: 20140610
  Transmission Date: 20141212
  Serious: No
  Sender: FDA-Public Use
  Company Number: US-PFIZER INC-2014154362

PATIENT
  Age: 68 Year
  Sex: Male

DRUGS (2)
  1. INLYTA [Suspect]
     Indication: NEOPLASM MALIGNANT
     Dosage: 1 MG, UNK
     Dates: start: 20131021, end: 20140604
  2. INLYTA [Suspect]
     Dosage: 5 MG, UNK
     Dates: start: 20131021, end: 20140604

REACTIONS (2)
  - Disease progression [Unknown]
  - Neoplasm malignant [Unknown]
